FAERS Safety Report 7729869-X (Version None)
Quarter: 2011Q3

REPORT INFORMATION
  Report Type: 
  Country: None (occurrence: None)
  Receive Date: 20110906
  Receipt Date: 20110829
  Transmission Date: 20111222
  Serious: Yes (Other)
  Sender: FDA-Public Use
  Company Number: US-ROCHE-799824

PATIENT
  Age: 71 Year
  Sex: Female
  Weight: 76.3 kg

DRUGS (15)
  1. CARVEDILOL [Concomitant]
  2. FLAXSEED [Concomitant]
  3. BEVACIZUMAB [Suspect]
     Indication: BRONCHIOLOALVEOLAR CARCINOMA
     Dosage: FREQUENCY:EVERY 21 DAYS, TOTAL DOSE: 1140 MG, LAST ADMINISTERED DATE: 26 AUG 2011
     Route: 042
     Dates: start: 20110601
  4. CITALOPRAM [Concomitant]
  5. GLIMEPIRIDE [Concomitant]
  6. LISINOPRIL [Concomitant]
  7. CRESTOR [Concomitant]
  8. FAMOTIDINE [Concomitant]
  9. PLAVIX [Concomitant]
  10. ERLOTINIB HYDROCHLORIDE [Suspect]
     Indication: BRONCHIOLOALVEOLAR CARCINOMA
     Dosage: TOTAL DOSE ADMINISTERED: 600 MG, LAST ADMINISTRATION DATE 29 AUG 2011
     Route: 048
     Dates: start: 20110601
  11. AMIODARONE HCL [Concomitant]
  12. AMLODIPINE [Concomitant]
  13. SYNTHROID [Concomitant]
  14. COQ-10 [Concomitant]
  15. SPIRONOLACTONE [Concomitant]

REACTIONS (1)
  - RETINAL DETACHMENT [None]
